FAERS Safety Report 14311758 (Version 1)
Quarter: 2017Q4

REPORT INFORMATION
  Report Type: Spontaneous
  Country: GB (occurrence: GB)
  Receive Date: 20171221
  Receipt Date: 20171221
  Transmission Date: 20180321
  Serious: Yes (Life-Threatening, Hospitalization)
  Sender: FDA-Public Use
  Company Number: GB-CIPLA LTD.-2017GB24858

PATIENT

DRUGS (2)
  1. ZOLEDRONIC ACID [Suspect]
     Active Substance: ZOLEDRONIC ACID
     Indication: HYPERCALCAEMIA
     Dosage: 4 MG, 500 ML OF SODIUM CHLORIDE 0.9%
     Route: 042
  2. LITHIUM. [Suspect]
     Active Substance: LITHIUM
     Indication: BIPOLAR DISORDER
     Dosage: 400 MG, TID
     Route: 065

REACTIONS (10)
  - Nephrogenic diabetes insipidus [Recovering/Resolving]
  - Hypophosphataemia [Unknown]
  - Hyperparathyroidism [Recovering/Resolving]
  - Hyperthyroidism [Recovering/Resolving]
  - Unmasking of previously unidentified disease [Unknown]
  - Hypercalcaemia [Recovered/Resolved]
  - Hypocalcaemia [Unknown]
  - Hypernatraemia [Recovered/Resolved]
  - Neuropsychiatric symptoms [Unknown]
  - Toxicity to various agents [Unknown]
